FAERS Safety Report 25275289 (Version 1)
Quarter: 2025Q2

REPORT INFORMATION
  Report Type: Spontaneous
  Country: US (occurrence: US)
  Receive Date: 20250506
  Receipt Date: 20250506
  Transmission Date: 20250716
  Serious: Yes (Death, Other)
  Sender: PURDUE
  Company Number: US-PURDUE PHARMA-USA-2025-0317251

PATIENT
  Age: 39 Year
  Sex: Male

DRUGS (2)
  1. OXYCODONE HYDROCHLORIDE [Suspect]
     Active Substance: OXYCODONE HYDROCHLORIDE
     Indication: Product used for unknown indication
     Route: 065
  2. CARFENTANIL C-11 [Suspect]
     Active Substance: CARFENTANIL C-11
     Indication: Product used for unknown indication
     Route: 065

REACTIONS (2)
  - Counterfeit product administered [Fatal]
  - Overdose [Fatal]

NARRATIVE: CASE EVENT DATE: 20250328
